FAERS Safety Report 8448215-X (Version None)
Quarter: 2012Q2

REPORT INFORMATION
  Report Type: 
  Country: None (occurrence: None)
  Receive Date: 20120619
  Receipt Date: 20120607
  Transmission Date: 20120825
  Serious: Yes (Hospitalization)
  Sender: FDA-Public Use
  Company Number: US-VERTEX PHARMACEUTICALS INC.-AE-2012-005287

PATIENT
  Sex: Male

DRUGS (3)
  1. PEGASYS [Concomitant]
     Indication: HEPATITIS C
     Route: 058
     Dates: start: 20120225
  2. INCIVEK [Suspect]
     Indication: HEPATITIS C
     Route: 048
     Dates: start: 20120225, end: 20120519
  3. RIBAVIRIN [Concomitant]
     Indication: HEPATITIS C
     Route: 048
     Dates: start: 20120225

REACTIONS (10)
  - DEHYDRATION [None]
  - VOMITING [None]
  - ANXIETY [None]
  - DYSURIA [None]
  - FATIGUE [None]
  - RASH [None]
  - ANAEMIA [None]
  - PRURITUS [None]
  - PROCTALGIA [None]
  - NAUSEA [None]
